FAERS Safety Report 9254172 (Version 1)
Quarter: 2013Q2

REPORT INFORMATION
  Report Type: Report from Study
  Country: AR (occurrence: AR)
  Receive Date: 20130425
  Receipt Date: 20130425
  Transmission Date: 20140414
  Serious: Yes (Other)
  Sender: FDA-Public Use
  Company Number: PHHY2013AR039614

PATIENT
  Sex: Female

DRUGS (1)
  1. EXFORGE [Suspect]
     Indication: BLOOD PRESSURE
     Dosage: 1 DF (320MG VALS/10 MG AMLO), DAILY
     Route: 048
     Dates: start: 20101117

REACTIONS (1)
  - Type 1 diabetes mellitus [Recovering/Resolving]
